FAERS Safety Report 4603070-0 (Version None)
Quarter: 2005Q2

REPORT INFORMATION
  Report Type: 
  Country: None (occurrence: None)
  Receive Date: 20050214
  Receipt Date: 20041208
  Transmission Date: 20051028
  Serious: No
  Sender: FDA-Public Use
  Company Number: USA041285674

PATIENT
  Sex: Male

DRUGS (3)
  1. CIALIS [Suspect]
     Dosage: 20 MG
  2. HIGH BLOOD PRESSURE MEDICATION [Concomitant]
  3. MEDICATION FOR BORDERLINE DIABETES [Concomitant]

REACTIONS (1)
  - DRUG INEFFECTIVE [None]
